FAERS Safety Report 6121114-4 (Version None)
Quarter: 2009Q1

REPORT INFORMATION
  Report Type: 
  Country: None (occurrence: None)
  Receive Date: 20090317
  Receipt Date: 20090310
  Transmission Date: 20090719
  Serious: Yes (Disabling, Other)
  Sender: FDA-Public Use
  Company Number: A0767467A

PATIENT
  Age: 42 Year
  Sex: Female

DRUGS (12)
  1. HYCAMTIN [Suspect]
     Dosage: 3MG PER DAY
     Route: 042
     Dates: start: 20090119, end: 20090123
  2. ALOXI [Concomitant]
  3. MEDROL [Concomitant]
  4. VALTREX [Concomitant]
  5. ZOVIRAX [Concomitant]
  6. ALLOPURINOL [Concomitant]
  7. AMPHOJEL [Concomitant]
  8. MAGNESIUM SULFATE [Concomitant]
  9. CALCIUM [Concomitant]
  10. BACTRIM DS [Concomitant]
  11. ACTIGALL [Concomitant]
  12. CIDOFOVIR [Concomitant]

REACTIONS (3)
  - CYSTITIS [None]
  - HAEMATURIA [None]
  - POLLAKIURIA [None]
